FAERS Safety Report 7821589-6 (Version None)
Quarter: 2011Q4

REPORT INFORMATION
  Report Type: 
  Country: None (occurrence: None)
  Receive Date: 20111018
  Receipt Date: 20101229
  Transmission Date: 20120403
  Serious: No
  Sender: FDA-Public Use
  Company Number: US-ASTRAZENECA-2010SE61341

PATIENT
  Age: 63 Year
  Sex: Male
  Weight: 95.3 kg

DRUGS (2)
  1. NASONEX [Concomitant]
  2. SYMBICORT [Suspect]
     Dosage: 160/4.5 TWO PUFFS TWICE A DAY
     Route: 055
     Dates: start: 20090101

REACTIONS (4)
  - MUSCLE SPASMS [None]
  - INCORRECT DOSE ADMINISTERED [None]
  - WEIGHT INCREASED [None]
  - DYSPHONIA [None]
